FAERS Safety Report 10232480 (Version 1)
Quarter: 2014Q2

REPORT INFORMATION
  Report Type: Spontaneous
  Country: US (occurrence: US)
  Receive Date: 20140612
  Receipt Date: 20140612
  Transmission Date: 20141212
  Serious: Yes (Hospitalization, Other)
  Sender: FDA-Public Use
  Company Number: US-JNJFOC-20140603369

PATIENT
  Sex: Female
  Weight: 47.17 kg

DRUGS (6)
  1. REMICADE [Suspect]
     Indication: COLITIS ULCERATIVE
     Route: 065
     Dates: start: 20140107
  2. REMICADE [Suspect]
     Indication: COLITIS ULCERATIVE
     Route: 065
     Dates: start: 201405
  3. REMICADE [Suspect]
     Indication: COLITIS ULCERATIVE
     Route: 065
     Dates: start: 201403
  4. REMICADE [Suspect]
     Indication: COLITIS ULCERATIVE
     Route: 065
     Dates: start: 201309, end: 2013
  5. REMICADE [Suspect]
     Indication: COLITIS ULCERATIVE
     Route: 065
     Dates: start: 2013
  6. PENTASA [Concomitant]
     Indication: COLITIS ULCERATIVE
     Route: 065

REACTIONS (5)
  - Investigation [Recovered/Resolved]
  - Hypoaesthesia [Not Recovered/Not Resolved]
  - Dizziness [Not Recovered/Not Resolved]
  - Drug effect decreased [Unknown]
  - Drug level increased [Unknown]
